FAERS Safety Report 16341776 (Version 3)
Quarter: 2019Q3

REPORT INFORMATION
  Report Type: Spontaneous
  Country: US (occurrence: US)
  Receive Date: 20190522
  Receipt Date: 20190729
  Transmission Date: 20191004
  Serious: Yes (Other)
  Sender: FDA-Public Use
  Company Number: US-BAYER-2019-098701

PATIENT
  Age: 26 Year
  Sex: Female

DRUGS (1)
  1. KYLEENA [Suspect]
     Active Substance: LEVONORGESTREL
     Indication: CONTRACEPTION
     Dosage: 17.5 MCG/24HR, CONT
     Route: 015
     Dates: start: 20180928, end: 20190628

REACTIONS (5)
  - Abdominal pain lower [Recovered/Resolved]
  - Uterine spasm [Recovered/Resolved]
  - Device dislocation [Recovered/Resolved]
  - Genital haemorrhage [Recovered/Resolved]
  - Genito-pelvic pain/penetration disorder [Recovered/Resolved]

NARRATIVE: CASE EVENT DATE: 20190419
